FAERS Safety Report 23193796 (Version 1)
Quarter: 2023Q4

REPORT INFORMATION
  Report Type: Other
  Country: US (occurrence: None)
  Receive Date: 20231116
  Receipt Date: 20231116
  Transmission Date: 20240110
  Serious: No
  Sender: FDA-Public Use
  Company Number: US-ROCHE-3458340

PATIENT
  Age: 68 Year
  Sex: Female

DRUGS (15)
  1. OCREVUS [Suspect]
     Active Substance: OCRELIZUMAB
     Indication: Relapsing multiple sclerosis
     Dosage: 300 MG IV DAY 1 AND DAY 15 AND THEN 600 MG IV EVERY 6 MONTHS, DATE OF TREATMENT: 06/OCT/2023
     Route: 042
     Dates: start: 20180314
  2. SOLU-MEDROL [Concomitant]
     Active Substance: METHYLPREDNISOLONE SODIUM SUCCINATE
  3. AUBAGIO [Concomitant]
     Active Substance: TERIFLUNOMIDE
  4. GILENYA [Concomitant]
     Active Substance: FINGOLIMOD HYDROCHLORIDE
  5. TECFIDERA [Concomitant]
     Active Substance: DIMETHYL FUMARATE
  6. COPAXONE [Concomitant]
     Active Substance: GLATIRAMER ACETATE
  7. ZINBRYTA [Concomitant]
     Active Substance: DACLIZUMAB
  8. LEMTRADA [Concomitant]
     Active Substance: ALEMTUZUMAB
  9. BETASERON [Concomitant]
     Active Substance: INTERFERON BETA-1B
  10. REBIF [Concomitant]
     Active Substance: INTERFERON BETA-1A
  11. AVONEX [Concomitant]
     Active Substance: INTERFERON BETA-1A
  12. PLEGRIDY [Concomitant]
     Active Substance: PEGINTERFERON BETA-1A
  13. DIPHENHYDRAMINE [Concomitant]
     Active Substance: DIPHENHYDRAMINE
  14. ACETAMINOPHEN [Concomitant]
     Active Substance: ACETAMINOPHEN
  15. TAMOXIFEN [Concomitant]
     Active Substance: TAMOXIFEN

REACTIONS (1)
  - COVID-19 [Recovered/Resolved]

NARRATIVE: CASE EVENT DATE: 20230101
